FAERS Safety Report 4546324-9 (Version None)
Quarter: 2005Q1

REPORT INFORMATION
  Report Type: 
  Country: None (occurrence: None)
  Receive Date: 20050103
  Receipt Date: 20041119
  Transmission Date: 20050727
  Serious: Yes (Death)
  Sender: FDA-Public Use
  Company Number: 2004097640

PATIENT
  Age: 82 Year
  Sex: Female

DRUGS (7)
  1. CELEBREX [Suspect]
     Indication: ILL-DEFINED DISORDER
     Dosage: 400 MG (200 MG, BID) ORAL
     Route: 048
  2. ASPIRIN [Suspect]
     Indication: ILL-DEFINED DISORDER
     Dosage: (325 MG, INTERVAL : EVERY OTHER DAY) ORAL
     Route: 048
  3. PREDNISONE TAB [Suspect]
     Indication: ILL-DEFINED DISORDER
     Dosage: 10 MG (10 MG ) ORAL
     Route: 048
  4. HYDROXYZINE HYDROCHLORIDE [Concomitant]
  5. CODEINE PHOSPHATE [Concomitant]
  6. SENNA FRUIT [Concomitant]
  7. ACETAMINOPHEN [Concomitant]

REACTIONS (4)
  - GASTROINTESTINAL HAEMORRHAGE [None]
  - HAEMOPTYSIS [None]
  - HYPERHIDROSIS [None]
  - PULSE PRESSURE DECREASED [None]
